FAERS Safety Report 22031865 (Version 1)
Quarter: 2023Q1

REPORT INFORMATION
  Report Type: Spontaneous
  Country: US (occurrence: None)
  Receive Date: 20230224
  Receipt Date: 20230224
  Transmission Date: 20230418
  Serious: Yes (Other)
  Sender: FDA-Public Use
  Company Number: US-ROCHE-3289908

PATIENT
  Age: 73 Year
  Sex: Female
  Weight: 59.4 kg

DRUGS (3)
  1. MYCOPHENOLATE MOFETIL [Suspect]
     Active Substance: MYCOPHENOLATE MOFETIL
     Indication: Product used for unknown indication
     Route: 065
  2. TREPROSTINIL [Suspect]
     Active Substance: TREPROSTINIL
     Indication: Pulmonary arterial hypertension
     Route: 065
     Dates: start: 20220909
  3. TREPROSTINIL [Suspect]
     Active Substance: TREPROSTINIL
     Route: 065

REACTIONS (6)
  - Interstitial lung disease [Unknown]
  - Fatigue [Not Recovered/Not Resolved]
  - Dyspnoea exertional [Unknown]
  - Cough [Unknown]
  - Dizziness [Unknown]
  - Myalgia [Unknown]

NARRATIVE: CASE EVENT DATE: 20230209
